FAERS Safety Report 23703126 (Version 1)
Quarter: 2024Q2

REPORT INFORMATION
  Report Type: Report from Study
  Country: CA (occurrence: CA)
  Receive Date: 20240403
  Receipt Date: 20240403
  Transmission Date: 20240716
  Serious: Yes (Hospitalization)
  Sender: FDA-Public Use
  Company Number: CA-JNJFOC-20240231015

PATIENT
  Age: 3 Decade
  Sex: Female

DRUGS (5)
  1. MACITENTAN [Suspect]
     Active Substance: MACITENTAN
     Indication: Pulmonary hypertension
     Dosage: THERAPY START DATE ALSO REPORTED AS 21-DEC-2021
     Route: 048
     Dates: start: 20211229
  2. MACITENTAN [Suspect]
     Active Substance: MACITENTAN
     Indication: Pulmonary hypertension
  3. SELEXIPAG [Suspect]
     Active Substance: SELEXIPAG
     Indication: Pulmonary hypertension
     Route: 048
     Dates: start: 20240222, end: 20240324
  4. ADCIRCA [Concomitant]
     Active Substance: TADALAFIL
  5. REMODULIN [Concomitant]
     Active Substance: TREPROSTINIL
     Dates: start: 20240325

REACTIONS (5)
  - Syncope [Not Recovered/Not Resolved]
  - Therapy change [Unknown]
  - Product dose omission issue [Unknown]
  - Pruritus [Unknown]
  - Urticaria [Unknown]
